FAERS Safety Report 20904138 (Version 3)
Quarter: 2022Q2

REPORT INFORMATION
  Report Type: Spontaneous
  Country: EG (occurrence: EG)
  Receive Date: 20220602
  Receipt Date: 20220616
  Transmission Date: 20220721
  Serious: Yes (Life-Threatening, Hospitalization, Other)
  Sender: FDA-Public Use
  Company Number: EG-NOVOPROD-923555

PATIENT
  Age: 75 Year
  Sex: Male
  Weight: 105 kg

DRUGS (8)
  1. INSULIN HUMAN [Suspect]
     Active Substance: INSULIN HUMAN
     Indication: Diabetes mellitus
     Dosage: 10U OR 15U (SINCE 10 YRS)
     Route: 058
  2. INSULIN HUMAN [Suspect]
     Active Substance: INSULIN HUMAN
     Dosage: 20U OR 30U
     Route: 058
     Dates: start: 202203
  3. INSULIN HUMAN [Suspect]
     Active Substance: INSULIN HUMAN
     Dosage: 40 IU, QD (MORNING)
     Route: 058
  4. BISOPROLOL FUMARATE [Concomitant]
     Active Substance: BISOPROLOL FUMARATE
     Indication: Hypertension
     Dosage: 10 (UNITS NOT REPORTED) QD (MORNING)
     Route: 048
     Dates: start: 2012
  5. PANTOPRAZOLE SODIUM [Concomitant]
     Active Substance: PANTOPRAZOLE SODIUM
     Indication: Cardiac disorder
     Dosage: 1 TABLET EVERY 12 HOUR
     Route: 048
     Dates: start: 2018
  6. IVABRADINE [Concomitant]
     Active Substance: IVABRADINE
     Indication: Cardiac disorder
     Dosage: 5 MG BID (EVERY 12 HOUR)
     Route: 048
     Dates: start: 2018
  7. JUSPRIN [Concomitant]
     Indication: Haemophilia
     Dosage: 81 MG, QD
     Route: 048
  8. CARFALONE [Concomitant]
     Indication: Product used for unknown indication
     Dosage: 25 MG, QD
     Route: 048

REACTIONS (3)
  - Limb injury [Not Recovered/Not Resolved]
  - Pulmonary oedema [Not Recovered/Not Resolved]
  - Hyperglycaemia [Recovered/Resolved]
